FAERS Safety Report 12568613 (Version 1)
Quarter: 2016Q3

REPORT INFORMATION
  Report Type: Report from Study
  Country: US (occurrence: US)
  Receive Date: 20160719
  Receipt Date: 20160719
  Transmission Date: 20161109
  Serious: No
  Sender: FDA-Public Use
  Company Number: PHEH2016US017640

PATIENT
  Sex: Male

DRUGS (1)
  1. GLEEVEC [Suspect]
     Active Substance: IMATINIB MESYLATE
     Indication: CARCINOID TUMOUR
     Route: 065

REACTIONS (3)
  - Hyperphagia [Unknown]
  - Vomiting [Unknown]
  - Nausea [Unknown]
